FAERS Safety Report 19452407 (Version 1)
Quarter: 2021Q2

REPORT INFORMATION
  Report Type: Report from Study
  Country: None (occurrence: US)
  Receive Date: 20210623
  Receipt Date: 20210623
  Transmission Date: 20210717
  Serious: Yes (Other)
  Sender: FDA-Public Use
  Company Number: US-ABBVIE-21K-163-3899438-00

PATIENT
  Age: 47 Year
  Sex: Female

DRUGS (1)
  1. HUMIRA [Suspect]
     Active Substance: ADALIMUMAB
     Indication: ANKYLOSING SPONDYLITIS
     Route: 058
     Dates: start: 20210430, end: 20210609

REACTIONS (14)
  - Peripheral swelling [Not Recovered/Not Resolved]
  - Illness [Recovered/Resolved]
  - Joint range of motion decreased [Unknown]
  - Bone deformity [Not Recovered/Not Resolved]
  - Hypoaesthesia [Unknown]
  - Dysstasia [Recovered/Resolved]
  - Nausea [Recovered/Resolved]
  - Insomnia [Unknown]
  - Loss of personal independence in daily activities [Unknown]
  - Pain [Unknown]
  - Mobility decreased [Unknown]
  - Loss of consciousness [Unknown]
  - Feeling abnormal [Unknown]
  - Vision blurred [Unknown]

NARRATIVE: CASE EVENT DATE: 2021
